FAERS Safety Report 6039598-9 (Version None)
Quarter: 2009Q1

REPORT INFORMATION
  Report Type: 
  Country: None (occurrence: None)
  Receive Date: 20090116
  Receipt Date: 20090110
  Transmission Date: 20090719
  Serious: Yes (Other)
  Sender: FDA-Public Use
  Company Number: CA-BRISTOL-MYERS SQUIBB COMPANY-14453278

PATIENT
  Age: 77 Year
  Sex: Male

DRUGS (8)
  1. ORENCIA [Suspect]
     Indication: RHEUMATOID ARTHRITIS
     Dosage: THERAPY DATES:JAN07-NOV08,INTERRUPTED AND WITHDRAWN ON 05DEC08.
     Route: 042
     Dates: start: 20070101, end: 20081205
  2. METHOTREXATE [Concomitant]
  3. LEUCOVORIN CALCIUM [Concomitant]
  4. PREDNISONE [Concomitant]
     Dosage: 1 TABLET
  5. FOSAMAX [Concomitant]
  6. PROSCAR [Concomitant]
     Dosage: 1 TAB
  7. FUROSEMIDE [Concomitant]
  8. ENALAPRIL MALEATE [Concomitant]
     Dosage: 1 TABLET

REACTIONS (1)
  - KAPOSI'S SARCOMA [None]
